FAERS Safety Report 16653864 (Version 1)
Quarter: 2019Q3

REPORT INFORMATION
  Report Type: Spontaneous
  Country: US (occurrence: US)
  Receive Date: 20190731
  Receipt Date: 20190731
  Transmission Date: 20191004
  Serious: Yes (Other)
  Sender: FDA-Public Use
  Company Number: US-KRAMERLABS-2019-US-014127

PATIENT
  Age: 56 Year
  Sex: Female

DRUGS (4)
  1. KETOCONAZOLE SHAMPOO (NON-SPECIFIC) [Suspect]
     Active Substance: KETOCONAZOLE
     Indication: CUSHING^S SYNDROME
  2. CARBOPLATIN. [Concomitant]
     Active Substance: CARBOPLATIN
  3. ALLOPURINOL. [Concomitant]
     Active Substance: ALLOPURINOL
     Dosage: USED DAILY
  4. ALBUMIN-BOUND PACLITAXEL [Concomitant]
     Active Substance: PACLITAXEL
     Dosage: 100 MG/SQUARE-METER

REACTIONS (2)
  - Product use in unapproved indication [Unknown]
  - Cholestatic liver injury [Unknown]
